FAERS Safety Report 6228580-4 (Version None)
Quarter: 2009Q2

REPORT INFORMATION
  Report Type: 
  Country: None (occurrence: None)
  Receive Date: 20090612
  Receipt Date: 20090609
  Transmission Date: 20091009
  Serious: Yes (Life-Threatening, Hospitalization)
  Sender: FDA-Public Use
  Company Number: FR-SANOFI-SYNTHELABO-A02200900153

PATIENT
  Sex: Female

DRUGS (2)
  1. GEMZAR [Concomitant]
     Route: 042
     Dates: start: 20081126, end: 20081126
  2. ELOXATIN [Suspect]
     Indication: OVARIAN EPITHELIAL CANCER
     Route: 041
     Dates: start: 20081126, end: 20081126

REACTIONS (2)
  - ACUTE RESPIRATORY DISTRESS SYNDROME [None]
  - LARYNGEAL DYSPNOEA [None]
